FAERS Safety Report 12569924 (Version 1)
Quarter: 2016Q3

REPORT INFORMATION
  Report Type: Spontaneous
  Country: US (occurrence: None)
  Receive Date: 20160718
  Receipt Date: 20160718
  Transmission Date: 20161109
  Serious: Yes (Other)
  Sender: FDA-Public Use
  Company Number: None

PATIENT
  Age: 58 Year
  Sex: Female
  Weight: 72.58 kg

DRUGS (2)
  1. LEVOTHYROXIN [Concomitant]
     Active Substance: LEVOTHYROXINE
  2. VALSARTAN TABLETS, 80 MG [Suspect]
     Active Substance: VALSARTAN
     Indication: HYPERTENSION
     Route: 048
     Dates: start: 20160201, end: 20160713

REACTIONS (5)
  - Product formulation issue [None]
  - Product substitution issue [None]
  - Hypersensitivity [None]
  - Pruritus generalised [None]
  - Purpura [None]

NARRATIVE: CASE EVENT DATE: 20160714
